FAERS Safety Report 7767300 (Version 6)
Quarter: 2012Q4

REPORT INFORMATION
  Report Type: 
  Country: US (occurrence: US)
  Receive Date: 20110120
  Receipt Date: 20121119
  Transmission Date: 20130627
  Serious: Yes (Hospitalization)
  Sender: FDA-Public Use
  Company Number: US-ASTRAZENECA-2011SE01960

PATIENT
  Age: 51 Year
  Sex: Female

DRUGS (2)
  1. NEXIUM [Suspect]
     Route: 048
  2. NEXIUM [Suspect]
     Dosage: THREE OR FOUR A DAY
     Route: 048

REACTIONS (7)
  - Osteomyelitis [Unknown]
  - Cartilage injury [Unknown]
  - Dyspepsia [Unknown]
  - Arthritis bacterial [Unknown]
  - Intentional drug misuse [Unknown]
  - Abdominal discomfort [Unknown]
  - Drug dose omission [Unknown]
